FAERS Safety Report 12204100 (Version 1)
Quarter: 2016Q1

REPORT INFORMATION
  Report Type: Spontaneous
  Country: US (occurrence: US)
  Receive Date: 20160323
  Receipt Date: 20160323
  Transmission Date: 20160526
  Serious: No
  Sender: FDA-Public Use
  Company Number: US-PFIZER INC-2016116792

PATIENT
  Age: 61 Year
  Sex: Male

DRUGS (2)
  1. EMBEDA [Suspect]
     Active Substance: MORPHINE SULFATE\NALTREXONE HYDROCHLORIDE
     Dosage: 20 MG, 1X/DAY (FOR 15 DAYS)
  2. MORPHINE SULFATE. [Suspect]
     Active Substance: MORPHINE SULFATE
     Dosage: 60 MG, UNK (Q12)

REACTIONS (4)
  - Mobility decreased [Unknown]
  - Dizziness [Unknown]
  - Amnesia [Unknown]
  - Fatigue [Unknown]
